FAERS Safety Report 10924192 (Version 1)
Quarter: 2015Q1

REPORT INFORMATION
  Report Type: Spontaneous
  Country: US (occurrence: None)
  Receive Date: 20150205
  Receipt Date: 20150205
  Transmission Date: 20150721
  Serious: Yes (Other)
  Sender: FDA-Public Use
  Company Number: 2014COV00015

PATIENT
  Age: 56 Year
  Sex: Female

DRUGS (2)
  1. NUEDEXTA [Suspect]
     Active Substance: DEXTROMETHORPHAN HYDROBROMIDE\QUINIDINE SULFATE
  2. RILUTEK [Suspect]
     Active Substance: RILUZOLE

REACTIONS (2)
  - Liver function test abnormal [None]
  - Jaundice [None]

NARRATIVE: CASE EVENT DATE: 20140529
